FAERS Safety Report 18969173 (Version 1)
Quarter: 2021Q1

REPORT INFORMATION
  Report Type: Spontaneous
  Country: US (occurrence: US)
  Receive Date: 20210304
  Receipt Date: 20210304
  Transmission Date: 20210420
  Serious: Yes (Disabling, Other)
  Sender: FDA-Public Use
  Company Number: US-ELI_LILLY_AND_COMPANY-US202102013102

PATIENT
  Age: 51 Year
  Sex: Male

DRUGS (2)
  1. GLUCAGON. [Concomitant]
     Active Substance: GLUCAGON
     Indication: TYPE 1 DIABETES MELLITUS
     Dosage: UNK UNK, PRN
  2. HUMALOG [Suspect]
     Active Substance: INSULIN LISPRO
     Indication: TYPE 1 DIABETES MELLITUS
     Dosage: 100 U, DAILY
     Route: 058
     Dates: start: 1984

REACTIONS (3)
  - Blood glucose decreased [Unknown]
  - Hypoglycaemic unconsciousness [Not Recovered/Not Resolved]
  - Hyperglycaemic unconsciousness [Unknown]

NARRATIVE: CASE EVENT DATE: 202004
